FAERS Safety Report 13793804 (Version 2)
Quarter: 2017Q3

REPORT INFORMATION
  Report Type: Spontaneous
  Country: US (occurrence: US)
  Receive Date: 20170726
  Receipt Date: 20170811
  Transmission Date: 20171127
  Serious: Yes (Hospitalization, Other)
  Sender: FDA-Public Use
  Company Number: US-AUROBINDO-AUR-APL-2017-37958

PATIENT
  Age: 73 Year
  Sex: Female

DRUGS (2)
  1. DIVALPROEX [Suspect]
     Active Substance: DIVALPROEX SODIUM
     Indication: SEIZURE
     Dosage: 800 MG, 3 TIMES A DAY
     Route: 065
  2. LEVETIRACETAM. [Suspect]
     Active Substance: LEVETIRACETAM
     Indication: SEIZURE
     Dosage: 1500 MG, TWO TIMES A DAY
     Route: 065

REACTIONS (5)
  - Rash pustular [Recovering/Resolving]
  - Rash erythematous [Recovering/Resolving]
  - Pyrexia [Recovering/Resolving]
  - Oedema [Recovering/Resolving]
  - Acute generalised exanthematous pustulosis [Recovering/Resolving]
